FAERS Safety Report 16808725 (Version 2)
Quarter: 2020Q1

REPORT INFORMATION
  Report Type: Report from Study
  Country: None (occurrence: US)
  Receive Date: 20190916
  Receipt Date: 20200110
  Transmission Date: 20200409
  Serious: Yes (Other)
  Sender: FDA-Public Use
  Company Number: US-ABBVIE-19K-163-2923789-00

PATIENT
  Sex: Male
  Weight: 95.34 kg

DRUGS (1)
  1. HUMIRA [Suspect]
     Active Substance: ADALIMUMAB
     Indication: CROHN^S DISEASE
     Route: 058

REACTIONS (10)
  - Ileostomy [Unknown]
  - Diabetes mellitus [Unknown]
  - Stomach mass [Unknown]
  - Insomnia [Unknown]
  - Impaired quality of life [Unknown]
  - Dizziness [Unknown]
  - Rectal discharge [Unknown]
  - Mass [Recovered/Resolved]
  - Drug ineffective [Recovered/Resolved]
  - Asthenia [Unknown]
